FAERS Safety Report 7608659-2 (Version None)
Quarter: 2011Q3

REPORT INFORMATION
  Report Type: 
  Country: None (occurrence: None)
  Receive Date: 20110714
  Receipt Date: 20110702
  Transmission Date: 20111222
  Serious: No
  Sender: FDA-Public Use
  Company Number: US-B.I. PHARMACEUTICALS,INC./RIDGEFIELD-2011-BP-17032BP

PATIENT
  Age: 51 Year
  Sex: Female

DRUGS (3)
  1. TYLENOL-500 [Concomitant]
     Indication: BACK PAIN
  2. TYLENOL-500 [Concomitant]
     Indication: SCIATICA
  3. PRADAXA [Suspect]
     Indication: ATRIAL FIBRILLATION
     Dosage: 300 MG
     Route: 048
     Dates: start: 20110601

REACTIONS (4)
  - SENSATION OF PRESSURE [None]
  - DYSPNOEA [None]
  - DYSPHAGIA [None]
  - PHARYNGEAL OEDEMA [None]
